FAERS Safety Report 6982526-X (Version None)
Quarter: 2010Q3

REPORT INFORMATION
  Report Type: 
  Country: None (occurrence: None)
  Receive Date: 20100914
  Receipt Date: 20100125
  Transmission Date: 20110219
  Serious: Yes (Other)
  Sender: FDA-Public Use
  Company Number: US-PFIZER INC-2010011198

PATIENT
  Sex: Male
  Weight: 76.19 kg

DRUGS (2)
  1. LYRICA [Suspect]
     Indication: SCIATICA
     Dosage: 150 MG, 1X/DAY
     Route: 048
     Dates: start: 20100122, end: 20100125
  2. FENTANYL [Concomitant]

REACTIONS (1)
  - INSOMNIA [None]
